FAERS Safety Report 9943666 (Version 2)
Quarter: 2014Q1

REPORT INFORMATION
  Report Type: Report from Study
  Country: US (occurrence: US)
  Receive Date: 20140303
  Receipt Date: 20140303
  Transmission Date: 20141002
  Serious: No
  Sender: FDA-Public Use
  Company Number: US-ABBVIE-12P-163-1001598-00

PATIENT
  Age: 35 Year
  Sex: Female

DRUGS (4)
  1. HUMIRA [Suspect]
     Indication: CROHN^S DISEASE
     Dosage: AT WEEK ZERO
     Route: 058
  2. HUMIRA [Suspect]
     Dosage: AT WEEK 2
     Route: 058
  3. HUMIRA [Suspect]
  4. CELEXA [Concomitant]
     Indication: DEPRESSION

REACTIONS (4)
  - Injection site induration [Recovering/Resolving]
  - Injection site swelling [Recovered/Resolved]
  - Injection site erythema [Recovering/Resolving]
  - Injection site pain [Recovering/Resolving]
